FAERS Safety Report 7123649-4 (Version None)
Quarter: 2010Q4

REPORT INFORMATION
  Report Type: 
  Country: None (occurrence: None)
  Receive Date: 20101125
  Receipt Date: 20101115
  Transmission Date: 20110411
  Serious: Yes (Other)
  Sender: FDA-Public Use
  Company Number: US-BRISTOL-MYERS SQUIBB COMPANY-13088786

PATIENT
  Age: 7 Year
  Sex: Female
  Weight: 17 kg

DRUGS (3)
  1. ATAZANAVIR [Suspect]
     Dosage: 300MG,500MG:1/25/05,700MG:29MAR05,900MG MAY05TEMP
     Route: 048
     Dates: start: 20041221, end: 20050728
  2. CO-TRIMOXAZOLE [Concomitant]
  3. ZIDOVUDINE [Concomitant]
     Dosage: DOSAGE INCREASED TO 320 MG ON 25-JAN-2005.
     Dates: start: 20041229

REACTIONS (1)
  - ELECTROCARDIOGRAM QT PROLONGED [None]
